FAERS Safety Report 7050198-4 (Version None)
Quarter: 2010Q4

REPORT INFORMATION
  Report Type: 
  Country: None (occurrence: None)
  Receive Date: 20101013
  Receipt Date: 20100902
  Transmission Date: 20110411
  Serious: Yes (Life-Threatening, Hospitalization, Other)
  Sender: FDA-Public Use
  Company Number: 2010AC000047

PATIENT
  Age: 40 Year
  Sex: Male
  Weight: 183.2532 kg

DRUGS (23)
  1. DIGOXIN [Suspect]
     Dosage: ; PO
     Route: 048
     Dates: end: 20080501
  2. DIGOXIN [Suspect]
     Dosage: ; PO
     Route: 048
     Dates: end: 20041201
  3. ULTRAM [Concomitant]
  4. DARVOCET [Concomitant]
  5. METOPROLOL [Concomitant]
  6. VASOTEC [Concomitant]
  7. ZOCOR [Concomitant]
  8. LASIX [Concomitant]
  9. ENALAPRIL MALEATE [Concomitant]
  10. LEXAPRO [Concomitant]
  11. KLOR-CON [Concomitant]
  12. ACCUPRIL [Concomitant]
  13. BENECAR [Concomitant]
  14. LISINOPRIL [Concomitant]
  15. VYTORIN [Concomitant]
  16. NITROGLYCERIN [Concomitant]
  17. LOPRESSOR [Concomitant]
  18. ALDACTONE [Concomitant]
  19. OXYCODONE HCL [Concomitant]
  20. CIPRO [Concomitant]
  21. COLACE [Concomitant]
  22. ASPIRIN [Concomitant]
  23. ALEVE (CAPLET) [Concomitant]

REACTIONS (25)
  - ABDOMINAL PAIN UPPER [None]
  - ANXIETY [None]
  - APPENDIX DISORDER [None]
  - ARRHYTHMIA [None]
  - CHEST PAIN [None]
  - DEPRESSION [None]
  - EATING DISORDER [None]
  - EJECTION FRACTION DECREASED [None]
  - ESSENTIAL HYPERTENSION [None]
  - GASTROINTESTINAL DISORDER [None]
  - GASTROINTESTINAL PAIN [None]
  - HYDROCELE [None]
  - MULTIPLE INJURIES [None]
  - MUSCULOSKELETAL PAIN [None]
  - NAUSEA [None]
  - ORTHOSTATIC HYPOTENSION [None]
  - PAIN [None]
  - PRESYNCOPE [None]
  - PROCEDURAL PAIN [None]
  - SCAR [None]
  - SLEEP APNOEA SYNDROME [None]
  - TESTICULAR PAIN [None]
  - TESTICULAR TORSION [None]
  - UNEVALUABLE EVENT [None]
  - WEIGHT DECREASED [None]
